FAERS Safety Report 25968795 (Version 1)
Quarter: 2025Q4

REPORT INFORMATION
  Report Type: Spontaneous
  Country: US (occurrence: None)
  Receive Date: 20251027
  Receipt Date: 20251027
  Transmission Date: 20260118
  Serious: Yes (Death)
  Sender: FDA-CTU
  Company Number: None

PATIENT
  Age: 53 Year
  Sex: Male
  Weight: 72.6 kg

DRUGS (10)
  1. CABENUVA [Suspect]
     Active Substance: CABOTEGRAVIR\RILPIVIRINE
     Dosage: OTHER QUANTITY : 1 KIT ;?OTHER FREQUENCY : 60 DAYS;?
     Route: 041
     Dates: start: 20240625, end: 20250925
  2. DULOXETINE [Concomitant]
     Active Substance: DULOXETINE
  3. OXYCODONE [Concomitant]
     Active Substance: OXYCODONE
  4. DAPSONE [Concomitant]
     Active Substance: DAPSONE
  5. HYDROXYZINE HYDROCHLORIDE [Concomitant]
     Active Substance: HYDROXYZINE HYDROCHLORIDE
  6. LIDODERM [Concomitant]
     Active Substance: LIDOCAINE
  7. NARCAN 4MG/0.1ML NAS SPRAY OTC [Concomitant]
  8. VITAMIN D 1,000IU LIQ SFTGL CAPS [Concomitant]
  9. ZOLPIDEM [Concomitant]
     Active Substance: ZOLPIDEM TARTRATE
  10. PREGABALIN 100MG CAPSULES [Concomitant]

REACTIONS (1)
  - Sepsis [None]

NARRATIVE: CASE EVENT DATE: 20250925
